FAERS Safety Report 4349459-9 (Version None)
Quarter: 2004Q2

REPORT INFORMATION
  Report Type: 
  Country: None (occurrence: None)
  Receive Date: 20040426
  Receipt Date: 20040412
  Transmission Date: 20050107
  Serious: Yes (Hospitalization)
  Sender: FDA-Public Use
  Company Number: 2003AP02111

PATIENT
  Age: 71 Year
  Sex: Male

DRUGS (9)
  1. ZOLADEX [Suspect]
     Indication: PROSTATE CANCER
     Dosage: 10.8 MG Q3MO SQ
     Route: 058
     Dates: start: 20030421, end: 20030421
  2. PROSTAL [Suspect]
     Indication: PROSTATE CANCER
     Dosage: 100 MG DAILY PO
     Route: 048
     Dates: start: 20030402, end: 20030527
  3. AMLODIPINE [Concomitant]
  4. DAONIL [Concomitant]
  5. LIPOCLIN [Concomitant]
  6. SELBEX [Concomitant]
  7. THIATON [Concomitant]
  8. SENNOSIDE [Concomitant]
  9. LENDORM [Concomitant]

REACTIONS (4)
  - ANOREXIA [None]
  - HEPATIC FUNCTION ABNORMAL [None]
  - LIVER DISORDER [None]
  - MALAISE [None]
